FAERS Safety Report 8176592-6 (Version None)
Quarter: 2012Q1

REPORT INFORMATION
  Report Type: 
  Country: None (occurrence: None)
  Receive Date: 20120301
  Receipt Date: 20120222
  Transmission Date: 20120608
  Serious: Yes (Hospitalization)
  Sender: FDA-Public Use
  Company Number: US-JNJFOC-20120211791

PATIENT
  Sex: Female
  Weight: 68.04 kg

DRUGS (3)
  1. MELOXICAM [Concomitant]
     Route: 048
  2. REMICADE [Suspect]
     Indication: RHEUMATOID ARTHRITIS
     Route: 042
  3. PREDNISONE TAB [Concomitant]
     Dosage: UTD
     Route: 065

REACTIONS (3)
  - HISTOPLASMOSIS [None]
  - INTERSTITIAL LUNG DISEASE [None]
  - PAIN [None]
